FAERS Safety Report 9310327 (Version 3)
Quarter: 2013Q2

REPORT INFORMATION
  Report Type: Spontaneous
  Country: JP (occurrence: JP)
  Receive Date: 20130527
  Receipt Date: 20130628
  Transmission Date: 20140414
  Serious: Yes (Hospitalization, Other)
  Sender: FDA-Public Use
  Company Number: JP-PFIZER INC-2013158642

PATIENT
  Age: 62 Year
  Sex: Female
  Weight: 50 kg

DRUGS (24)
  1. FARMORUBICIN RTU [Suspect]
     Indication: BREAST CANCER
     Dosage: 120 MG, UNK
     Route: 042
     Dates: start: 20130222, end: 20130222
  2. FARMORUBICIN RTU [Suspect]
     Dosage: 120 MG, UNK
     Route: 042
     Dates: start: 20130315, end: 20130315
  3. FARMORUBICIN RTU [Suspect]
     Dosage: 100 MG, UNK
     Route: 042
     Dates: start: 20130405, end: 20130405
  4. FARMORUBICIN RTU [Suspect]
     Dosage: 100 MG, UNK
     Route: 042
     Dates: start: 20130426, end: 20130426
  5. 5-FU [Suspect]
     Indication: BREAST CANCER
     Dosage: 600 MG, UNK
     Dates: start: 20130222, end: 20130222
  6. 5-FU [Suspect]
     Dosage: 600 MG, UNK
     Dates: start: 20130315, end: 20130315
  7. 5-FU [Suspect]
     Dosage: 500 MG, UNK
     Dates: start: 20130405, end: 20130405
  8. 5-FU [Suspect]
     Dosage: 500 MG, UNK
     Dates: start: 20130426, end: 20130426
  9. ENDOXAN [Suspect]
     Indication: BREAST CANCER
     Dosage: 600 MG, UNK
     Dates: start: 20130222, end: 20130222
  10. ENDOXAN [Suspect]
     Dosage: 600 MG, UNK
     Dates: start: 20130315, end: 20130315
  11. ENDOXAN [Suspect]
     Dosage: 500 MG, UNK
     Dates: start: 20130405, end: 20130405
  12. ENDOXAN [Suspect]
     Dosage: 500 MG, UNK
     Dates: start: 20130426, end: 20130426
  13. GRAN [Suspect]
     Dosage: UNK
     Dates: start: 20130307, end: 20130307
  14. GRAN [Suspect]
     Dosage: UNK
     Dates: start: 20130308, end: 20130308
  15. GRAN [Suspect]
     Dosage: UNK
     Dates: start: 20130329, end: 20130329
  16. GRAN [Suspect]
     Dosage: UNK
     Dates: start: 20130419, end: 20130419
  17. GRAN [Suspect]
     Dosage: UNK
     Dates: start: 20130420, end: 20130420
  18. GRAN [Suspect]
     Dosage: UNK
     Dates: start: 20130510, end: 20130510
  19. EMEND [Concomitant]
     Dosage: UNK
     Route: 048
     Dates: start: 20130222, end: 20130222
  20. EMEND [Concomitant]
     Dosage: UNK
     Route: 048
     Dates: start: 20130315, end: 20130315
  21. EMEND [Concomitant]
     Dosage: UNK
     Route: 048
     Dates: start: 20130405, end: 20130405
  22. EMEND [Concomitant]
     Dosage: UNK
     Route: 048
     Dates: start: 20130426, end: 20130426
  23. LEVOFLOXACIN [Concomitant]
     Dosage: UNK
     Route: 048
     Dates: start: 20130329, end: 20130405
  24. LEVOFLOXACIN [Concomitant]
     Dosage: UNK
     Route: 048
     Dates: start: 20130414, end: 20130426

REACTIONS (2)
  - Interstitial lung disease [Recovered/Resolved]
  - Neutrophil count decreased [Recovered/Resolved]
